FAERS Safety Report 22623757 (Version 3)
Quarter: 2023Q4

REPORT INFORMATION
  Report Type: Spontaneous
  Country: JP (occurrence: JP)
  Receive Date: 20230621
  Receipt Date: 20231123
  Transmission Date: 20240109
  Serious: Yes (Death, Hospitalization, Other)
  Sender: FDA-Public Use
  Company Number: JP-ASTELLAS-2023JP005232

PATIENT
  Age: 73 Year
  Sex: Male
  Weight: 59 kg

DRUGS (14)
  1. PADCEV [Suspect]
     Active Substance: ENFORTUMAB VEDOTIN-EJFV
     Indication: Ureteric cancer
     Route: 041
     Dates: start: 20230413, end: 20230413
  2. PADCEV [Suspect]
     Active Substance: ENFORTUMAB VEDOTIN-EJFV
     Indication: Metastases to lung
     Route: 041
     Dates: start: 20230420, end: 20230420
  3. PADCEV [Suspect]
     Active Substance: ENFORTUMAB VEDOTIN-EJFV
     Indication: Metastases to lymph nodes
  4. PADCEV [Suspect]
     Active Substance: ENFORTUMAB VEDOTIN-EJFV
     Indication: Metastases to lymph nodes
  5. CALONAL [Concomitant]
     Active Substance: ACETAMINOPHEN
     Indication: Cancer pain
     Route: 048
     Dates: start: 20230313, end: 20230522
  6. DICLOFENAC SODIUM [Concomitant]
     Active Substance: DICLOFENAC\DICLOFENAC SODIUM
     Indication: Cancer pain
     Route: 062
     Dates: start: 20230313, end: 20230522
  7. PREGABALIN [Concomitant]
     Active Substance: PREGABALIN
     Indication: Cancer pain
     Route: 048
     Dates: start: 20230331, end: 20230522
  8. TRAMADOL [Concomitant]
     Active Substance: TRAMADOL\TRAMADOL HYDROCHLORIDE
     Indication: Cancer pain
     Route: 048
     Dates: start: 20230407, end: 20230522
  9. Myser [Concomitant]
     Indication: Exfoliative rash
     Dosage: UNK UNK, TWICE DAILY
     Route: 050
     Dates: start: 20230427, end: 20230527
  10. Myser [Concomitant]
     Indication: Erythema
  11. GLYCOSAMINOGLYCANS [Concomitant]
     Active Substance: GLYCOSAMINOGLYCANS
     Indication: Exfoliative rash
     Dosage: UNK UNK, TWICE DAILY
     Route: 050
     Dates: start: 20230427, end: 20230527
  12. GLYCOSAMINOGLYCANS [Concomitant]
     Active Substance: GLYCOSAMINOGLYCANS
     Indication: Erythema
  13. ALLELOCK [Concomitant]
     Active Substance: OLOPATADINE HYDROCHLORIDE
     Indication: Exfoliative rash
     Dosage: 5 MG, TWICE DAILY, MORNING, BEFORE BEDTIME
     Route: 048
     Dates: start: 20230427, end: 20230522
  14. ALLELOCK [Concomitant]
     Active Substance: OLOPATADINE HYDROCHLORIDE
     Indication: Erythema

REACTIONS (7)
  - Melaena [Fatal]
  - Malaise [Fatal]
  - Gastrointestinal haemorrhage [Unknown]
  - Pneumonia [Fatal]
  - Exfoliative rash [Not Recovered/Not Resolved]
  - Erythema [Not Recovered/Not Resolved]
  - General physical health deterioration [Fatal]

NARRATIVE: CASE EVENT DATE: 20230421
